FAERS Safety Report 14967267 (Version 1)
Quarter: 2018Q2

REPORT INFORMATION
  Report Type: Report from Study
  Country: JP (occurrence: JP)
  Receive Date: 20180604
  Receipt Date: 20180604
  Transmission Date: 20180711
  Serious: Yes (Life-Threatening)
  Sender: FDA-Public Use
  Company Number: JP-CHEPLA-C20170262_B

PATIENT
  Age: 68 Year
  Sex: Male

DRUGS (9)
  1. ARSENIC TRIOXIDE (ATO) [Suspect]
     Active Substance: ARSENIC TRIOXIDE
     Indication: ACUTE PROMYELOCYTIC LEUKAEMIA
     Dosage: 0.15 MG/KG/DAY IN 5 DAYS A WEEK FOR 5 WEEKS (2 CONSOLIDATION COURSES AFTER INITIAL THERAPY)
     Route: 042
  2. TAMIBAROTENE (AM80) [Suspect]
     Active Substance: TAMIBAROTENE
     Indication: ACUTE PROMYELOCYTIC LEUKAEMIA
     Dosage: 6 MG/M^2 ORALLY 14 CONSECUTIVE DAYS EVERY 3 MONTHS (MAINTENACE AFTER INITIAL THERAPY)
  3. METHOTRAXATE 50MG/2ML APP PHARM [Suspect]
     Active Substance: METHOTREXATE SODIUM
     Indication: ACUTE PROMYELOCYTIC LEUKAEMIA
     Dosage: TIT REGIMEN (INCLUDING METHOTREXATE 15 MG) 15 TIMES AFTER 1ST CNS RELAPSE
     Route: 037
  4. IDARUBICIN (IDA) [Suspect]
     Active Substance: IDARUBICIN
     Indication: ACUTE PROMYELOCYTIC LEUKAEMIA
     Dosage: IDARUBICIN (IDA) 8 MG/M2 FOR 3 DAYS (AFTER INITIAL DIAGNOSIS)
  5. ARSENIC TRIOXIDE (ATO) [Suspect]
     Active Substance: ARSENIC TRIOXIDE
     Indication: ACUTE PROMYELOCYTIC LEUKAEMIA
     Dosage: RE-INDUCTION THERAPY AFTER 1ST RELAPSE
  6. ALL-TRANS RETINOIC ACID (ATRA) [Suspect]
     Active Substance: TRETINOIN
     Indication: ACUTE PROMYELOCYTIC LEUKAEMIA
     Dosage: ATRA 5 MG/M2 ORALLY DAILY (AFTER INITIAL DIAGNOSIS, INDUCTION + MAINTENANCE)
  7. CYTARABINE. [Suspect]
     Active Substance: CYTARABINE
     Dosage: TIT REGIMEN (INCLUDING CYTARABINE 40 MG) 15 TIMES AFTER 1ST CNS RELAPSE
     Route: 037
  8. PREDNISOLONE. [Suspect]
     Active Substance: PREDNISOLONE
     Indication: ACUTE PROMYELOCYTIC LEUKAEMIA
     Dosage: TIT REGIMEN (INCLUDING PREDNISOLONE 10 MG) 15 TIMES AFTER 1ST CNS RELAPSE
     Route: 037
  9. GEMTUZUMAB OZOGAMIZIN (GO) [Suspect]
     Active Substance: GEMTUZUMAB OZOGAMICIN
     Indication: ACUTE PROMYELOCYTIC LEUKAEMIA
     Dosage: GO (4 MG/M2 ON DAY 1 OF THE ATO COURSE; TREATMENT AFTER 1ST RELAPSE)

REACTIONS (6)
  - Acute promyelocytic leukaemia [None]
  - Central nervous system leukaemia [Recovered/Resolved]
  - Cognitive disorder [Recovered/Resolved]
  - Leukaemia recurrent [Recovered/Resolved]
  - Hydrocephalus [None]
  - Gait disturbance [Recovered/Resolved]
